FAERS Safety Report 4908021-7 (Version None)
Quarter: 2006Q1

REPORT INFORMATION
  Report Type: 
  Country: None (occurrence: None)
  Receive Date: 20060208
  Receipt Date: 20060131
  Transmission Date: 20060701
  Serious: Yes (Other)
  Sender: FDA-Public Use
  Company Number: MEDI-0004101

PATIENT
  Age: 8 Month
  Sex: Male

DRUGS (1)
  1. SYNAGIS (PALIVIZUMAB) [Suspect]
     Indication: ANTIVIRAL PROPHYLAXIS
     Dosage: UNKNOWN, 1 IN 30 D, INTRAMUSCULAR
     Route: 030
     Dates: start: 20051129, end: 20051129

REACTIONS (4)
  - BRONCHIAL OBSTRUCTION [None]
  - HYPOXIA [None]
  - STRIDOR [None]
  - TACHYPNOEA [None]
